FAERS Safety Report 25282736 (Version 1)
Quarter: 2025Q2

REPORT INFORMATION
  Report Type: Spontaneous
  Country: US (occurrence: None)
  Receive Date: 20250507
  Receipt Date: 20250507
  Transmission Date: 20250717
  Serious: Yes (Death)
  Sender: FDA-CTU
  Company Number: None

PATIENT
  Age: 86 Year
  Sex: Female

DRUGS (1)
  1. PROMACTA [Suspect]
     Active Substance: ELTROMBOPAG OLAMINE
     Indication: Myelodysplastic syndrome
     Dosage: FREQUENCY : DAILY;?
     Route: 048
     Dates: start: 20220826, end: 20220930

REACTIONS (10)
  - Pancytopenia [None]
  - Febrile neutropenia [None]
  - Klebsiella bacteraemia [None]
  - Fatigue [None]
  - Confusional state [None]
  - Decreased appetite [None]
  - Septic shock [None]
  - Atrial fibrillation [None]
  - General physical health deterioration [None]
  - Failure to thrive [None]

NARRATIVE: CASE EVENT DATE: 20230228
